FAERS Safety Report 8156986-5 (Version None)
Quarter: 2012Q1

REPORT INFORMATION
  Report Type: 
  Country: None (occurrence: None)
  Receive Date: 20120208
  Receipt Date: 20120127
  Transmission Date: 20120608
  Serious: Yes (Other)
  Sender: FDA-Public Use
  Company Number: 2011028550

PATIENT
  Age: 55 Year
  Sex: Female
  Weight: 94.3482 kg

DRUGS (19)
  1. HIZENTRA [Suspect]
     Indication: IMMUNODEFICIENCY COMMON VARIABLE
     Dosage: SEE IMAGE
     Route: 058
     Dates: start: 20110207
  2. L-CARNITIDINE (LEVOCARNITINE) [Concomitant]
  3. XOPENEX [Concomitant]
  4. RELAFEN [Concomitant]
  5. RIBOFLAVIN CAP [Concomitant]
  6. KAPIDEX (DRUGS FOR FUNCTIONAL GASTROINTEST. DISORDERS) [Concomitant]
  7. HIZENTRA [Suspect]
  8. THIAMINE HCL [Concomitant]
  9. METOPROLOL TARTRATE [Concomitant]
  10. NASONEX [Concomitant]
  11. VENLAFAXINE [Concomitant]
  12. PACERONE [Concomitant]
  13. HIZENTRA [Suspect]
  14. METHOTREXATE [Concomitant]
  15. XANAX [Concomitant]
  16. PREDNISONE TAB [Concomitant]
  17. RITUXAN [Concomitant]
  18. TRIGLIDE (FENFIBRATE) [Concomitant]
  19. MESTINON [Concomitant]

REACTIONS (4)
  - FLUSHING [None]
  - URINARY TRACT INFECTION [None]
  - DYSPNOEA [None]
  - FATIGUE [None]
